FAERS Safety Report 11398452 (Version 1)
Quarter: 2015Q3

REPORT INFORMATION
  Report Type: Spontaneous
  Country: US (occurrence: None)
  Receive Date: 20150729
  Receipt Date: 20150729
  Transmission Date: 20151125
  Serious: Yes (Other)
  Sender: FDA-Public Use
  Company Number: GXBR2015US001031

PATIENT
  Age: 54 Year
  Sex: Female
  Weight: 81.6 kg

DRUGS (3)
  1. ALOXI (PLONOSETRON HYDROCHLORIDE) [Concomitant]
  2. DEXAMETHASONE. [Concomitant]
     Active Substance: DEXAMETHASONE
  3. DOCETAXEL (NGX) (DOCETAXEL) SOLUTION FOR INFUSION [Suspect]
     Active Substance: DOCETAXEL
     Indication: BREAST CANCER STAGE II
     Route: 042
     Dates: start: 20150318

REACTIONS (4)
  - Hyperhidrosis [None]
  - Chest pain [None]
  - Dyspnoea [None]
  - Erythema [None]

NARRATIVE: CASE EVENT DATE: 20150318
